FAERS Safety Report 4334332-2 (Version None)
Quarter: 2004Q2

REPORT INFORMATION
  Report Type: 
  Country: None (occurrence: None)
  Receive Date: 20040405
  Receipt Date: 20040307
  Transmission Date: 20050107
  Serious: Yes (Life-Threatening)
  Sender: FDA-Public Use
  Company Number: 2004-BP-01959RP

PATIENT
  Age: 78 Year
  Sex: Female

DRUGS (2)
  1. AGGRENOX [Suspect]
     Indication: BASAL GANGLION DEGENERATION
     Dosage: 400/50MG (SEE TEXT, 200MG/25MG 1 CAP BID), PO
     Route: 048
  2. AGGRENOX [Suspect]
     Indication: LACUNAR INFARCTION
     Dosage: 400/50MG (SEE TEXT, 200MG/25MG 1 CAP BID), PO
     Route: 048

REACTIONS (1)
  - UPPER GASTROINTESTINAL HAEMORRHAGE [None]
